FAERS Safety Report 25604421 (Version 3)
Quarter: 2025Q4

REPORT INFORMATION
  Report Type: Report from Study
  Country: US (occurrence: US)
  Receive Date: 20250725
  Receipt Date: 20251020
  Transmission Date: 20260118
  Serious: No
  Sender: ACADIA PHARMACEUTICALS
  Company Number: US-ACADIA PHARMACEUTICALS INC.-ACA-2025-TRF-008521

PATIENT
  Sex: Female
  Weight: 65.7 kg

DRUGS (2)
  1. DAYBUE [Suspect]
     Active Substance: TROFINETIDE
     Indication: Rett syndrome
     Dosage: 60 MILLILITER, BID (G-TUBE)
  2. DAYBUE [Suspect]
     Active Substance: TROFINETIDE
     Dosage: 44 MILLILITER, BID (G-TUBE) (INCREASING 2 ML EVERY 2 WEEKS)

REACTIONS (2)
  - Weight decreased [Unknown]
  - Underdose [Not Recovered/Not Resolved]
